FAERS Safety Report 25942148 (Version 1)
Quarter: 2025Q4

REPORT INFORMATION
  Report Type: Spontaneous
  Country: CA (occurrence: CA)
  Receive Date: 20251020
  Receipt Date: 20251020
  Transmission Date: 20260118
  Serious: Yes (Other)
  Sender: SANDOZ
  Company Number: CA-SANDOZ-SDZ2025CA077003

PATIENT
  Age: 68 Year
  Sex: Male

DRUGS (5)
  1. ENTYVIO [Suspect]
     Active Substance: VEDOLIZUMAB
     Dosage: 300.0 MG, 1 EVERY 4  WEEKS
     Route: 042
  2. ENTYVIO [Suspect]
     Active Substance: VEDOLIZUMAB
     Dosage: 300.0 MG, 1 EVERY 4  WEEKS
     Route: 042
  3. ENTYVIO [Suspect]
     Active Substance: VEDOLIZUMAB
     Indication: Colitis ulcerative
     Dosage: 300.0 MG
     Route: 042
  4. ENTYVIO [Suspect]
     Active Substance: VEDOLIZUMAB
     Dosage: 300.0 MG
     Route: 042
  5. METFORMIN [Suspect]
     Active Substance: METFORMIN HYDROCHLORIDE
     Indication: Product used for unknown indication
     Dosage: UNK
     Route: 065

REACTIONS (3)
  - Colitis ulcerative [Unknown]
  - Off label use [Unknown]
  - Product dose omission issue [Unknown]
